FAERS Safety Report 16210916 (Version 1)
Quarter: 2019Q2

REPORT INFORMATION
  Report Type: Report from Study
  Country: US (occurrence: US)
  Receive Date: 20190418
  Receipt Date: 20190418
  Transmission Date: 20190711
  Serious: Yes (Hospitalization, Other)
  Sender: FDA-Public Use
  Company Number: US-EMD SERONO-9085088

PATIENT
  Sex: Female

DRUGS (1)
  1. REBIF [Suspect]
     Active Substance: INTERFERON BETA-1A
     Indication: MULTIPLE SCLEROSIS
     Route: 058
     Dates: start: 20180808, end: 20190317

REACTIONS (7)
  - Unevaluable event [Unknown]
  - Memory impairment [Unknown]
  - Colon cancer [Unknown]
  - Malaise [Unknown]
  - Hypertension [Unknown]
  - Vomiting [Unknown]
  - Pyrexia [Unknown]
